FAERS Safety Report 7003474-5 (Version None)
Quarter: 2010Q3

REPORT INFORMATION
  Report Type: 
  Country: None (occurrence: None)
  Receive Date: 20100920
  Receipt Date: 20100908
  Transmission Date: 20110219
  Serious: Yes (Hospitalization)
  Sender: FDA-Public Use
  Company Number: JP-AMGEN-QUU438985

PATIENT
  Age: 67 Year
  Sex: Female

DRUGS (3)
  1. ENBREL [Suspect]
     Indication: RHEUMATOID ARTHRITIS
     Dosage: NOT PROVIDED
     Route: 058
     Dates: start: 20060101
  2. ENBREL [Suspect]
     Dosage: NOT PROVIDED
     Route: 058
     Dates: start: 20070101, end: 20091001
  3. ENBREL [Suspect]
     Dosage: NOT PROVIDED
     Route: 058
     Dates: start: 20100201, end: 20100301

REACTIONS (6)
  - HIP FRACTURE [None]
  - JOINT DESTRUCTION [None]
  - NECK PAIN [None]
  - POSTOPERATIVE WOUND INFECTION [None]
  - STAPHYLOCOCCAL INFECTION [None]
  - STAPHYLOCOCCAL SEPSIS [None]
